FAERS Safety Report 23542391 (Version 4)
Quarter: 2024Q3

REPORT INFORMATION
  Report Type: Report from Study
  Country: US (occurrence: US)
  Receive Date: 20240220
  Receipt Date: 20240910
  Transmission Date: 20241017
  Serious: Yes (Death, Hospitalization, Other)
  Sender: GLAXOSMITHKLINE
  Company Number: US-GSKCCFUS-Case-01936295_AE-107651

PATIENT

DRUGS (3)
  1. MOMELOTINIB [Suspect]
     Active Substance: MOMELOTINIB
     Indication: Myelofibrosis
     Dosage: 200 MG, QD
     Route: 048
     Dates: start: 202311
  2. MOMELOTINIB [Suspect]
     Active Substance: MOMELOTINIB
     Dosage: 200 MG, QD
     Route: 048
  3. MOMELOTINIB [Suspect]
     Active Substance: MOMELOTINIB
     Dosage: 200 MG, QD
     Route: 048

REACTIONS (17)
  - Death [Fatal]
  - Productive cough [Unknown]
  - Pyrexia [Unknown]
  - Diverticulitis [Not Recovered/Not Resolved]
  - Colonic abscess [Unknown]
  - Abdominal abscess [Unknown]
  - Abscess drainage [Unknown]
  - Pneumonia [Not Recovered/Not Resolved]
  - Cardiac failure [Unknown]
  - Blood pressure decreased [Unknown]
  - White blood cell count increased [Unknown]
  - Platelet count increased [Unknown]
  - Malaise [Unknown]
  - Heart rate increased [Unknown]
  - Skin wound [Unknown]
  - Blood test abnormal [Unknown]
  - Product dose omission issue [Not Recovered/Not Resolved]

NARRATIVE: CASE EVENT DATE: 20240204
